FAERS Safety Report 6807043-9 (Version None)
Quarter: 2010Q2

REPORT INFORMATION
  Report Type: 
  Country: None (occurrence: None)
  Receive Date: 20100629
  Receipt Date: 20080702
  Transmission Date: 20101027
  Serious: No
  Sender: FDA-Public Use
  Company Number: US-PFIZER INC-2008054327

PATIENT
  Sex: Male
  Weight: 78.181 kg

DRUGS (6)
  1. VIAGRA [Suspect]
     Indication: PROSTATECTOMY
     Dates: start: 20080501
  2. VIAGRA [Suspect]
     Indication: SEXUAL DYSFUNCTION
  3. NEXIUM [Concomitant]
  4. PRAVASTATIN [Concomitant]
     Indication: BLOOD CHOLESTEROL
  5. ADVAIR DISKUS 100/50 [Concomitant]
     Indication: ASTHMA
  6. NASONEX [Concomitant]
     Indication: NASAL CONGESTION

REACTIONS (1)
  - ERECTILE DYSFUNCTION [None]
